FAERS Safety Report 5626963-4 (Version None)
Quarter: 2008Q1

REPORT INFORMATION
  Report Type: 
  Country: None (occurrence: None)
  Receive Date: 20080212
  Receipt Date: 20071221
  Transmission Date: 20080703
  Serious: Yes (Other)
  Sender: FDA-Public Use
  Company Number: 2008003406

PATIENT
  Age: 40 Year
  Sex: Male

DRUGS (1)
  1. ZYRTEC [Suspect]
     Dates: start: 20050101, end: 20070901

REACTIONS (2)
  - DRUG DEPENDENCE [None]
  - SLEEP DISORDER [None]
